FAERS Safety Report 4532733-0 (Version None)
Quarter: 2004Q4

REPORT INFORMATION
  Report Type: 
  Country: None (occurrence: None)
  Receive Date: 20041220
  Receipt Date: 20041220
  Transmission Date: 20050328
  Serious: Yes (Other)
  Sender: FDA-Public Use
  Company Number: None

PATIENT
  Sex: Male

DRUGS (3)
  1. SINGULAIR [Suspect]
     Indication: ASTHMA
     Dosage: 4 MG PO Q HS
     Route: 048
     Dates: start: 20030707, end: 20040601
  2. SINGULAIR [Suspect]
     Indication: HYPERSENSITIVITY
     Dosage: 4 MG PO Q HS
     Route: 048
     Dates: start: 20030707, end: 20040601
  3. ZYRTEC [Concomitant]

REACTIONS (5)
  - ANXIETY [None]
  - IRRITABILITY [None]
  - MOOD SWINGS [None]
  - SLEEP DISORDER [None]
  - SLEEP TERROR [None]
